FAERS Safety Report 20911505 (Version 1)
Quarter: 2022Q2

REPORT INFORMATION
  Report Type: Spontaneous
  Country: AR (occurrence: AR)
  Receive Date: 20220603
  Receipt Date: 20220603
  Transmission Date: 20220721
  Serious: Yes (Other)
  Sender: FDA-Public Use
  Company Number: AR-PFIZER INC-202200783899

PATIENT
  Sex: Female

DRUGS (1)
  1. TALAZOPARIB [Suspect]
     Active Substance: TALAZOPARIB
     Indication: Breast cancer
     Dosage: 1 MG, 1X/DAY

REACTIONS (1)
  - Pancytopenia [Recovered/Resolved]
